FAERS Safety Report 15820310 (Version 2)
Quarter: 2019Q1

REPORT INFORMATION
  Report Type: Report from Study
  Country: US (occurrence: US)
  Receive Date: 20190114
  Receipt Date: 20190311
  Transmission Date: 20190417
  Serious: Yes (Hospitalization, Other)
  Sender: FDA-Public Use
  Company Number: US-GILEAD-2019-0384425

PATIENT
  Age: 61 Year
  Sex: Female

DRUGS (1)
  1. AMBRISENTAN [Suspect]
     Active Substance: AMBRISENTAN
     Indication: PULMONARY HYPERTENSION
     Dosage: 10 MG
     Route: 065

REACTIONS (5)
  - Pulmonary arterial hypertension [Unknown]
  - Pericardial effusion [Unknown]
  - Unevaluable event [Unknown]
  - Fluid retention [Unknown]
  - Pulmonary veno-occlusive disease [Unknown]
